FAERS Safety Report 8245055-1 (Version None)
Quarter: 2012Q1

REPORT INFORMATION
  Report Type: 
  Country: None (occurrence: None)
  Receive Date: 20120329
  Receipt Date: 20120322
  Transmission Date: 20120608
  Serious: Yes (Hospitalization)
  Sender: FDA-Public Use
  Company Number: US-GLAXOSMITHKLINE-A0898676A

PATIENT
  Age: 54 Year
  Sex: Male

DRUGS (6)
  1. AVANDAMET [Suspect]
     Indication: TYPE 2 DIABETES MELLITUS
     Route: 048
     Dates: start: 20040101, end: 20090101
  2. LOVASTATIN [Concomitant]
  3. AVANDIA [Suspect]
     Indication: DIABETES MELLITUS
     Dosage: 4MG PER DAY
     Route: 048
  4. GLIPIZIDE [Concomitant]
  5. AVAPRO [Concomitant]
  6. JANUVIA [Concomitant]

REACTIONS (1)
  - ARTERIOSCLEROSIS [None]
